FAERS Safety Report 18206473 (Version 1)
Quarter: 2020Q3

REPORT INFORMATION
  Report Type: Spontaneous
  Country: US (occurrence: US)
  Receive Date: 20200828
  Receipt Date: 20200828
  Transmission Date: 20201103
  Serious: Yes (Death, Other)
  Sender: FDA-Public Use
  Company Number: US-CHEPLA-C20202437_05

PATIENT
  Age: 53 Year
  Sex: Male

DRUGS (1)
  1. GANCICLOVIR. [Suspect]
     Active Substance: GANCICLOVIR
     Indication: HUMAN HERPESVIRUS 6 ENCEPHALITIS
     Route: 042

REACTIONS (2)
  - Gastrointestinal haemorrhage [Fatal]
  - Product use in unapproved indication [Unknown]
